FAERS Safety Report 4310575-9 (Version None)
Quarter: 2004Q1

REPORT INFORMATION
  Report Type: 
  Country: None (occurrence: None)
  Receive Date: 20040301
  Receipt Date: 20031029
  Transmission Date: 20041129
  Serious: No
  Sender: FDA-Public Use
  Company Number: WAES 0310USA03236

PATIENT
  Age: 72 Year
  Sex: Male

DRUGS (2)
  1. ZETIA [Suspect]
     Dosage: 10MG/DAILY/PO
     Route: 048
     Dates: start: 20030601, end: 20030101
  2. LIPITOR [Concomitant]

REACTIONS (2)
  - ALANINE AMINOTRANSFERASE INCREASED [None]
  - ASPARTATE AMINOTRANSFERASE INCREASED [None]
